FAERS Safety Report 4338688-6 (Version None)
Quarter: 2004Q2

REPORT INFORMATION
  Report Type: 
  Country: None (occurrence: None)
  Receive Date: 20040409
  Receipt Date: 20040325
  Transmission Date: 20050107
  Serious: Yes (Death, Hospitalization, Congenital Anomaly)
  Sender: FDA-Public Use
  Company Number: 2004-00177FE

PATIENT
  Age: 30 Year
  Sex: Female

DRUGS (2)
  1. PENTASA [Suspect]
     Indication: CROHN'S DISEASE
     Dosage: 2 G ORALLY
     Route: 048
     Dates: start: 20030317, end: 20030815
  2. LEXOMIL (LEXOMIL) (BROMAZEPAM) [Suspect]
     Dosage: 6 MG ORALLY
     Route: 048
     Dates: start: 20030317, end: 20030815

REACTIONS (6)
  - ABORTION INDUCED [None]
  - COMPLICATIONS OF MATERNAL EXPOSURE TO THERAPEUTIC DRUGS [None]
  - CONGENITAL CENTRAL NERVOUS SYSTEM ANOMALY [None]
  - DRUG EXPOSURE DURING PREGNANCY [None]
  - PORENCEPHALY [None]
  - PREGNANCY [None]
